FAERS Safety Report 16767766 (Version 2)
Quarter: 2019Q4

REPORT INFORMATION
  Report Type: Spontaneous
  Country: US (occurrence: US)
  Receive Date: 20190903
  Receipt Date: 20191010
  Transmission Date: 20200122
  Serious: Yes (Hospitalization, Other)
  Sender: FDA-Public Use
  Company Number: US-SUNOVION-2019SUN003592

PATIENT
  Age: 75 Year
  Sex: Female
  Weight: 68.03 kg

DRUGS (9)
  1. MUCINEX [Concomitant]
     Active Substance: GUAIFENESIN
     Dosage: 600 MG, BID
  2. OXYGEN. [Concomitant]
     Active Substance: OXYGEN
     Dosage: LITER OXYGEN AT CONTINUOUS AIR 98%
     Route: 065
  3. ATORVASTATIN [Concomitant]
     Active Substance: ATORVASTATIN
     Indication: BLOOD CHOLESTEROL ABNORMAL
     Dosage: 40 MG, QD
     Route: 048
  4. PANRAZOLE [Concomitant]
     Indication: COELIAC DISEASE
     Dosage: 40 MG, BID
     Route: 048
  5. ASA [Concomitant]
     Active Substance: ASPIRIN
     Dosage: 81 MG
  6. TRELEGY ELLIPTA [Concomitant]
     Active Substance: FLUTICASONE FUROATE\UMECLIDINIUM BROMIDE\VILANTEROL TRIFENATATE
     Indication: CHRONIC OBSTRUCTIVE PULMONARY DISEASE
     Dosage: UNK
  7. LOSARTAN. [Concomitant]
     Active Substance: LOSARTAN
     Indication: BLOOD PRESSURE ABNORMAL
     Dosage: 25 MG, QD
     Route: 048
  8. BROVANA [Suspect]
     Active Substance: ARFORMOTEROL TARTRATE
     Indication: CHRONIC OBSTRUCTIVE PULMONARY DISEASE
     Dosage: 15 ?G/2ML, BID
     Route: 055
  9. BYSTOLIC [Concomitant]
     Active Substance: NEBIVOLOL HYDROCHLORIDE
     Indication: BLOOD PRESSURE ABNORMAL
     Dosage: 2.5 MG, QD
     Route: 048

REACTIONS (9)
  - Oropharyngeal discomfort [Unknown]
  - Dyspnoea [Unknown]
  - Epistaxis [Unknown]
  - Product administration error [Unknown]
  - Pyrexia [Unknown]
  - Oesophageal disorder [Unknown]
  - Thrombosis [Unknown]
  - Infection [Unknown]
  - Feeling abnormal [Unknown]

NARRATIVE: CASE EVENT DATE: 20190805
